FAERS Safety Report 15608967 (Version 3)
Quarter: 2018Q4

REPORT INFORMATION
  Report Type: Report from Study
  Country: US (occurrence: US)
  Receive Date: 20181112
  Receipt Date: 20181120
  Transmission Date: 20190205
  Serious: No
  Sender: FDA-Public Use
  Company Number: US-JAZZ-2018-US-015535

PATIENT
  Age: 51 Year
  Sex: Female

DRUGS (17)
  1. ADDERALL [Concomitant]
     Active Substance: AMPHETAMINE ASPARTATE\AMPHETAMINE SULFATE\DEXTROAMPHETAMINE SACCHARATE\DEXTROAMPHETAMINE SULFATE
  2. PROZAC [Concomitant]
     Active Substance: FLUOXETINE HYDROCHLORIDE
  3. XYREM [Suspect]
     Active Substance: SODIUM OXYBATE
     Indication: CATAPLEXY
     Dosage: 2.25 G
     Route: 048
     Dates: start: 201810, end: 201810
  4. ONDANSETRON [Concomitant]
     Active Substance: ONDANSETRON
  5. XYREM [Suspect]
     Active Substance: SODIUM OXYBATE
     Dosage: 1.85 G
     Route: 048
     Dates: start: 20181021
  6. VALTREX [Concomitant]
     Active Substance: VALACYCLOVIR HYDROCHLORIDE
  7. HYDROCORTISONE. [Concomitant]
     Active Substance: HYDROCORTISONE
  8. XYREM [Suspect]
     Active Substance: SODIUM OXYBATE
     Indication: NARCOLEPSY
     Dosage: 3.5 G, BID
     Route: 048
     Dates: start: 20181017, end: 201810
  9. MELATONIN [Concomitant]
     Active Substance: MELATONIN
  10. ZOLPIDEM TARTRATE. [Concomitant]
     Active Substance: ZOLPIDEM TARTRATE
  11. XYREM [Suspect]
     Active Substance: SODIUM OXYBATE
     Dosage: 1.75 G
     Route: 048
     Dates: start: 20181020, end: 20181020
  12. ARMOUR THYROID [Concomitant]
     Active Substance: THYROID, PORCINE
  13. WELLBUTRIN [Concomitant]
     Active Substance: BUPROPION HYDROCHLORIDE
  14. ACICLOVIR [Concomitant]
     Active Substance: ACYCLOVIR
  15. ESTRADIOL. [Concomitant]
     Active Substance: ESTRADIOL
  16. XYREM [Suspect]
     Active Substance: SODIUM OXYBATE
     Dosage: 1.5 G
     Route: 048
     Dates: start: 20181019, end: 20181019
  17. NITROFURANTOIN. [Concomitant]
     Active Substance: NITROFURANTOIN

REACTIONS (16)
  - Fatigue [Not Recovered/Not Resolved]
  - Abdominal discomfort [Unknown]
  - Constipation [Not Recovered/Not Resolved]
  - Abdominal pain [Unknown]
  - Moaning [Recovered/Resolved]
  - Urinary incontinence [Recovered/Resolved]
  - Wrong technique in product usage process [Unknown]
  - Eye swelling [Unknown]
  - Retching [Recovered/Resolved]
  - Head discomfort [Recovered/Resolved]
  - Joint stiffness [Not Recovered/Not Resolved]
  - Dizziness [Unknown]
  - Nausea [Recovered/Resolved]
  - Skin burning sensation [Unknown]
  - Vomiting [Unknown]
  - Product preparation error [Unknown]

NARRATIVE: CASE EVENT DATE: 2018
